FAERS Safety Report 17863633 (Version 1)
Quarter: 2020Q2

REPORT INFORMATION
  Report Type: Spontaneous
  Country: US (occurrence: US)
  Receive Date: 20200604
  Receipt Date: 20200604
  Transmission Date: 20200714
  Serious: Yes (Life-Threatening, Hospitalization, Other)
  Sender: FDA-Public Use
  Company Number: US-ALLERGAN-2021897US

PATIENT
  Sex: Female

DRUGS (3)
  1. ACETAZOLAMIDE. [Concomitant]
     Active Substance: ACETAZOLAMIDE
     Indication: IDIOPATHIC INTRACRANIAL HYPERTENSION
  2. NORETHINDRONE ACET;ETHINYL ESTRADIOL UNK [Suspect]
     Active Substance: ETHINYL ESTRADIOL\NORETHINDRONE ACETATE
     Indication: POLYCYSTIC OVARIES
     Route: 048
  3. METHYLPREDNISOLONE. [Suspect]
     Active Substance: METHYLPREDNISOLONE
     Indication: IDIOPATHIC INTRACRANIAL HYPERTENSION
     Route: 042

REACTIONS (6)
  - Brain oedema [Recovering/Resolving]
  - Cerebral venous sinus thrombosis [Recovering/Resolving]
  - Papilloedema [Recovered/Resolved with Sequelae]
  - Cerebrovascular accident [Recovering/Resolving]
  - Idiopathic intracranial hypertension [Recovering/Resolving]
  - Subarachnoid haemorrhage [Recovering/Resolving]
